FAERS Safety Report 8183091-4 (Version None)
Quarter: 2012Q1

REPORT INFORMATION
  Report Type: 
  Country: None (occurrence: None)
  Receive Date: 20120126
  Receipt Date: 20111228
  Transmission Date: 20120608
  Serious: Yes (Hospitalization, Other)
  Sender: FDA-Public Use
  Company Number: PHEH2011US010609

PATIENT
  Age: 3 Year
  Sex: Female
  Weight: 15 kg

DRUGS (6)
  1. VALPROIC ACID [Concomitant]
  2. LAMICTAL [Concomitant]
  3. AFINITOR [Suspect]
     Indication: ASTROCYTOMA, LOW GRADE
     Dosage: 2.5 MG, ORAL, ORAL
     Route: 048
     Dates: start: 20111026, end: 20111114
  4. AFINITOR [Suspect]
     Indication: ASTROCYTOMA, LOW GRADE
     Dosage: 2.5 MG, ORAL, ORAL
     Route: 048
     Dates: start: 20111101, end: 20111117
  5. DEPAKOTE [Concomitant]
  6. CLONAZEPAM [Concomitant]

REACTIONS (4)
  - DEHYDRATION [None]
  - STOMATITIS [None]
  - ABDOMINAL DISCOMFORT [None]
  - DIARRHOEA [None]
